FAERS Safety Report 5931984-8 (Version None)
Quarter: 2008Q4

REPORT INFORMATION
  Report Type: 
  Country: None (occurrence: None)
  Receive Date: 20081027
  Receipt Date: 20081020
  Transmission Date: 20090506
  Serious: Yes (Other)
  Sender: FDA-Public Use
  Company Number: ES-ROXANE LABORATORIES, INC.-2008-RO-00145RO

PATIENT
  Age: 59 Year
  Sex: Female

DRUGS (14)
  1. FUROSEMIDE [Suspect]
  2. AZATHIOPRINE [Suspect]
     Indication: IMMUNOSUPPRESSANT DRUG THERAPY
  3. CYCLOPHOSPHAMIDE [Suspect]
     Indication: IMMUNOSUPPRESSANT DRUG THERAPY
  4. PREDNISONE TAB [Suspect]
     Indication: IMMUNOSUPPRESSANT DRUG THERAPY
     Dosage: 20MG
  5. DIAZEPAM [Suspect]
  6. CALCIUM CARBONATE [Suspect]
  7. OXYGEN [Suspect]
     Indication: OXYGEN SUPPLEMENTATION
  8. ACENOCOUMAROL [Suspect]
  9. OMEPRAZOLE [Suspect]
  10. LEVOTHYROXINE SODIUM [Suspect]
  11. FOLIC ACID [Suspect]
  12. COLECALCIFEROL [Suspect]
  13. ITRACONAZOLE [Concomitant]
     Indication: PHAEHYPHOMYCOSIS
     Dosage: 200MG
     Route: 048
  14. ITRACONAZOLE [Concomitant]

REACTIONS (6)
  - BLOOD CHOLESTEROL INCREASED [None]
  - BLOOD LACTATE DEHYDROGENASE INCREASED [None]
  - BLOOD URIC ACID INCREASED [None]
  - C-REACTIVE PROTEIN INCREASED [None]
  - PHAEHYPHOMYCOSIS [None]
  - RED BLOOD CELL SEDIMENTATION RATE INCREASED [None]
